FAERS Safety Report 4547857-1 (Version None)
Quarter: 2004Q4

REPORT INFORMATION
  Report Type: 
  Country: None (occurrence: None)
  Receive Date: 20041227
  Receipt Date: 20041117
  Transmission Date: 20050328
  Serious: No
  Sender: FDA-Public Use
  Company Number: 04P-163-0280829-00

PATIENT
  Age: 60 Year
  Sex: Female
  Weight: 46.7205 kg

DRUGS (10)
  1. HUMIRA [Suspect]
     Indication: RHEUMATOID ARTHRITIS
     Dosage: 40 MG, 1 IN 2 WK, SUBUTANEOUS
     Route: 058
     Dates: start: 20040701, end: 20040801
  2. DOXYCYCLINE HYDROCHLORIDE [Concomitant]
  3. AZATHIOPRINE [Concomitant]
  4. MELOXICAM [Concomitant]
  5. PANTOPRAZOLE [Concomitant]
  6. CITALOPRAM HYDROBROMIDE [Concomitant]
  7. GLYCOPYRRONIUM BROMIDE [Concomitant]
  8. CRESTOR [Concomitant]
  9. TELMISARTAN [Concomitant]
  10. AXOTAL [Concomitant]

REACTIONS (6)
  - ARTHROPOD BITE [None]
  - INJECTION SITE PAIN [None]
  - LOCAL SWELLING [None]
  - SKIN TIGHTNESS [None]
  - SWELLING FACE [None]
  - THROAT IRRITATION [None]
